FAERS Safety Report 7930969-X (Version None)
Quarter: 2011Q4

REPORT INFORMATION
  Report Type: 
  Country: None (occurrence: None)
  Receive Date: 20111121
  Receipt Date: 20111110
  Transmission Date: 20120403
  Serious: Yes (Hospitalization)
  Sender: FDA-Public Use
  Company Number: JP-EISAI INC-E3810-05024-SPO-JP

PATIENT
  Age: 83 Year
  Sex: Male

DRUGS (4)
  1. RABEPRAZOLE SODIUM [Suspect]
     Dosage: UNKNOWN
     Route: 048
     Dates: end: 20110923
  2. HOCHU-EKKI-TO [Suspect]
     Route: 065
  3. CLARITHROMYCIN [Suspect]
     Indication: BRONCHIAL DISORDER
     Dosage: UNKNOWN
     Route: 065
     Dates: start: 20110601, end: 20110920
  4. URDESTON [Suspect]
     Route: 048
     Dates: start: 20100101, end: 20110923

REACTIONS (1)
  - PNEUMONIA [None]
